FAERS Safety Report 13613915 (Version 1)
Quarter: 2017Q2

REPORT INFORMATION
  Report Type: Spontaneous
  Country: US (occurrence: US)
  Receive Date: 20170606
  Receipt Date: 20170606
  Transmission Date: 20170830
  Serious: No
  Sender: FDA-Public Use
  Company Number: US-TEVA-731697ACC

PATIENT
  Sex: Female

DRUGS (1)
  1. MINOXIDIL TSOL MN [Suspect]
     Active Substance: MINOXIDIL

REACTIONS (3)
  - Product substitution issue [None]
  - Alopecia [Recovered/Resolved]
  - Intentional product misuse [None]
